FAERS Safety Report 8511280-5 (Version None)
Quarter: 2012Q3

REPORT INFORMATION
  Report Type: 
  Country: None (occurrence: None)
  Receive Date: 20120716
  Receipt Date: 20120704
  Transmission Date: 20120928
  Serious: Yes (Other)
  Sender: FDA-Public Use
  Company Number: JP-BRISTOL-MYERS SQUIBB COMPANY-16746729

PATIENT

DRUGS (2)
  1. TAXOL [Suspect]
     Indication: OVARIAN CANCER
  2. PARAPLATIN AQ [Suspect]
     Indication: OVARIAN CANCER

REACTIONS (1)
  - RENAL FAILURE ACUTE [None]
